FAERS Safety Report 6846276-2 (Version None)
Quarter: 2010Q3

REPORT INFORMATION
  Report Type: 
  Country: None (occurrence: None)
  Receive Date: 20100712
  Receipt Date: 20100628
  Transmission Date: 20110219
  Serious: Yes (Hospitalization)
  Sender: FDA-Public Use
  Company Number: 7009533

PATIENT
  Age: 47 Year
  Sex: Female

DRUGS (4)
  1. REBIF [Suspect]
     Dosage: SEE IMAGE
     Route: 058
     Dates: end: 20100528
  2. REBIF [Suspect]
     Dosage: SEE IMAGE
     Route: 058
     Dates: start: 20100614, end: 20100625
  3. REBIF [Suspect]
     Dosage: SEE IMAGE
     Route: 058
     Dates: start: 20090824
  4. REBIF [Suspect]
     Dosage: SEE IMAGE
     Route: 058
     Dates: start: 20100625

REACTIONS (6)
  - ABDOMINAL PAIN UPPER [None]
  - BODY TEMPERATURE INCREASED [None]
  - DIARRHOEA [None]
  - ESCHERICHIA INFECTION [None]
  - HEPATIC ENZYME INCREASED [None]
  - VOMITING [None]
